FAERS Safety Report 8551662-9 (Version None)
Quarter: 2012Q3

REPORT INFORMATION
  Report Type: 
  Country: None (occurrence: None)
  Receive Date: 20120730
  Receipt Date: 20120726
  Transmission Date: 20120928
  Serious: Yes (Hospitalization)
  Sender: FDA-Public Use
  Company Number: US-TEVA-2011004222

PATIENT
  Sex: Male
  Weight: 138.8 kg

DRUGS (14)
  1. ELAVIL [Concomitant]
  2. BUPROPION HCL [Concomitant]
  3. TREANDA [Suspect]
     Indication: MULTIPLE MYELOMA
     Route: 041
     Dates: start: 20110614, end: 20110713
  4. LENALIDOMIDE [Suspect]
     Indication: MULTIPLE MYELOMA
     Dates: start: 20110614, end: 20110802
  5. REGLAN [Concomitant]
  6. POTASSIUM CHLORIDE [Concomitant]
     Dates: start: 20110721
  7. CELEXA [Concomitant]
  8. MORPHINE SULFATE [Concomitant]
  9. COMPAZINE [Concomitant]
  10. ESOMEPRAZOLE MAGNESIUM [Concomitant]
     Dates: start: 20110721
  11. DEXAMETHASONE [Suspect]
     Indication: MULTIPLE MYELOMA
     Dates: start: 20110614, end: 20110802
  12. FIORICET [Concomitant]
  13. ATIVAN [Concomitant]
  14. ZOFRAN [Concomitant]

REACTIONS (1)
  - ABDOMINAL PAIN [None]
